FAERS Safety Report 7748303 (Version 10)
Quarter: 2014Q2

REPORT INFORMATION
  Report Type: Report from Study
  Country: DE (occurrence: DE)
  Receive Date: 20110104
  Receipt Date: 20140612
  Transmission Date: 20141212
  Serious: Yes (Life-Threatening, Hospitalization, Other)
  Sender: FDA-Public Use
  Company Number: DE-AMGEN-DEUCT2010009010

PATIENT
  Age: 63 Year
  Sex: Male
  Weight: 85 kg

DRUGS (14)
  1. ETANERCEPT [Suspect]
     Indication: ANKYLOSING SPONDYLITIS
     Dosage: 50 MG, QWK
     Route: 058
     Dates: start: 20100310, end: 2010
  2. ETANERCEPT [Suspect]
     Dosage: 25 MG, 2 TIMES/WK
     Route: 058
     Dates: start: 2010, end: 20101110
  3. METFORMIN [Concomitant]
     Indication: TYPE 2 DIABETES MELLITUS
     Dosage: UNK MG, UNK
  4. CIPRALEX                           /01588502/ [Concomitant]
     Indication: DEPRESSION
     Dosage: 10 MG, UNK
  5. CO-DIOVAN [Concomitant]
     Indication: HYPERTENSION
     Dosage: 25/160 MG, UNK
  6. DILATREND [Concomitant]
     Indication: HYPERTENSION
     Dosage: 12.5 MG, UNK
  7. RAMIPRIL [Concomitant]
     Indication: HYPERTENSION
     Dosage: UNK MG, UNK
  8. NOVOTHYRAL [Concomitant]
     Indication: GOITRE
     Dosage: UNK
  9. AQUAPHOR                           /00298701/ [Concomitant]
     Indication: HYPERURICAEMIA
     Dosage: 10 MG, UNK
  10. ALLOPURINOL [Concomitant]
     Indication: HYPERURICAEMIA
     Dosage: 300 MG, UNK
  11. ALLOPURINOL [Concomitant]
     Dosage: 300 MG, UNK
  12. KELTICAN N [Concomitant]
     Indication: BRAIN INJURY
     Dosage: UNK
  13. TEBONIN                            /01003103/ [Concomitant]
     Indication: BRAIN INJURY
     Dosage: UNK
  14. CELEBREX [Concomitant]
     Dosage: UNK

REACTIONS (4)
  - Renal cell carcinoma [Not Recovered/Not Resolved]
  - Metastasis [Not Recovered/Not Resolved]
  - Squamous cell carcinoma [Recovered/Resolved]
  - Goitre [Not Recovered/Not Resolved]
